FAERS Safety Report 8053219-5 (Version None)
Quarter: 2012Q1

REPORT INFORMATION
  Report Type: 
  Country: None (occurrence: None)
  Receive Date: 20120118
  Receipt Date: 20120104
  Transmission Date: 20120608
  Serious: Yes (Disabling)
  Sender: FDA-Public Use
  Company Number: GB-WATSON-2011-10776

PATIENT
  Age: 65 Year
  Sex: Male
  Weight: 73 kg

DRUGS (4)
  1. FINASTERIDE [Concomitant]
     Indication: PROSTATISM
     Dosage: 5 MG, UNKNOWN
     Route: 048
  2. SIMVASTATIN [Suspect]
     Indication: TRANSIENT ISCHAEMIC ATTACK
     Dosage: 40 MG, UNKNOWN
     Route: 048
     Dates: start: 20090325, end: 20100729
  3. ASPIRIN [Concomitant]
     Indication: TRANSIENT ISCHAEMIC ATTACK
     Dosage: 75 MG, UNKNOWN
     Route: 048
  4. TAMSULOSIN HCL [Concomitant]
     Indication: URINARY RETENTION
     Dosage: 400 UG, UNKNOWN
     Route: 048

REACTIONS (6)
  - PARKINSON'S DISEASE [None]
  - LETHARGY [None]
  - GAIT DISTURBANCE [None]
  - DYSPHAGIA [None]
  - PARKINSONISM [None]
  - FLAT AFFECT [None]
